FAERS Safety Report 13238928 (Version 1)
Quarter: 2017Q1

REPORT INFORMATION
  Report Type: Spontaneous
  Country: US (occurrence: US)
  Receive Date: 20170216
  Receipt Date: 20170216
  Transmission Date: 20170428
  Serious: No
  Sender: FDA-Public Use
  Company Number: US-ASTRAZENECA-2017SE14517

PATIENT
  Sex: Male
  Weight: 93 kg

DRUGS (2)
  1. LEVEMIR [Concomitant]
     Active Substance: INSULIN DETEMIR
     Indication: TYPE 2 DIABETES MELLITUS
     Route: 058
     Dates: start: 2013
  2. BYDUREON [Suspect]
     Active Substance: EXENATIDE
     Indication: TYPE 2 DIABETES MELLITUS
     Route: 058
     Dates: start: 2017

REACTIONS (7)
  - Injection site haemorrhage [Unknown]
  - Device issue [Unknown]
  - Injection site pain [Unknown]
  - Intentional product misuse [Unknown]
  - Product use issue [Unknown]
  - Weight increased [Unknown]
  - Injection site urticaria [Unknown]
